FAERS Safety Report 10881923 (Version 1)
Quarter: 2015Q1

REPORT INFORMATION
  Report Type: Spontaneous
  Country: US (occurrence: US)
  Receive Date: 20150303
  Receipt Date: 20150303
  Transmission Date: 20150721
  Serious: Yes (Other)
  Sender: FDA-Public Use
  Company Number: US-009507513-1502USA011666

PATIENT
  Sex: Male

DRUGS (1)
  1. BELSOMRA [Suspect]
     Active Substance: SUVOREXANT
     Dosage: 20 MG, 1 TABLET, ^LAST WEEK^
     Route: 048
     Dates: start: 201502, end: 201502

REACTIONS (1)
  - Paralysis [Recovered/Resolved]

NARRATIVE: CASE EVENT DATE: 201502
